FAERS Safety Report 24098201 (Version 3)
Quarter: 2025Q1

REPORT INFORMATION
  Report Type: Report from Study
  Country: US (occurrence: US)
  Receive Date: 20240716
  Receipt Date: 20250123
  Transmission Date: 20250409
  Serious: Yes (Death, Life-Threatening, Other)
  Sender: PFIZER
  Company Number: US-PFIZER INC-PV202400092131

PATIENT
  Age: 24 Year
  Sex: Male

DRUGS (3)
  1. FENTANYL CITRATE [Suspect]
     Active Substance: FENTANYL CITRATE
  2. GIDAZEPAM [Suspect]
     Active Substance: GIDAZEPAM
  3. BROMAZOLAM [Suspect]
     Active Substance: BROMAZOLAM

REACTIONS (1)
  - Toxicity to various agents [Fatal]
